FAERS Safety Report 7620502 (Version 5)
Quarter: 2014Q1

REPORT INFORMATION
  Report Type: Spontaneous
  Country: US (occurrence: US)
  Receive Date: 20101007
  Receipt Date: 20140121
  Transmission Date: 20141002
  Serious: Yes (Hospitalization, Other)
  Sender: FDA-Public Use
  Company Number: US-BAYER-201035777NA

PATIENT
  Age: 26 Year
  Sex: Female
  Weight: 79.37 kg

DRUGS (6)
  1. YASMIN [Suspect]
     Dosage: UNK
     Dates: start: 2003, end: 20091211
  2. VICODIN [Concomitant]
     Dosage: PRN
     Route: 048
  3. ALEVE [Concomitant]
     Dosage: AS NEEDED
  4. MAALOX [Concomitant]
     Dosage: AS NEEDED
  5. IBUPROFEN [Concomitant]
     Dosage: AS NEEDED
  6. TYLENOL [PARACETAMOL] [Concomitant]
     Dosage: AS NEEDED

REACTIONS (3)
  - Gallbladder disorder [Unknown]
  - Cholelithiasis [Unknown]
  - Cholecystitis acute [None]
